FAERS Safety Report 7146888-5 (Version None)
Quarter: 2010Q4

REPORT INFORMATION
  Report Type: 
  Country: None (occurrence: None)
  Receive Date: 20101209
  Receipt Date: 20100628
  Transmission Date: 20110411
  Serious: Yes (Death)
  Sender: FDA-Public Use
  Company Number: NL-ACTELION-A-CH2010-37689

PATIENT

DRUGS (1)
  1. BOSENTAN TABLET UNKNOWN  EU MG [Suspect]

REACTIONS (1)
  - DEATH [None]
